FAERS Safety Report 6405057-4 (Version None)
Quarter: 2009Q4

REPORT INFORMATION
  Report Type: 
  Country: None (occurrence: None)
  Receive Date: 20091019
  Receipt Date: 20091007
  Transmission Date: 20100525
  Serious: Yes (Other)
  Sender: FDA-Public Use
  Company Number: DE-PFIZER INC-2009279406

PATIENT
  Age: 71 Year

DRUGS (5)
  1. AROMASIN [Suspect]
     Indication: BREAST CANCER FEMALE
     Dosage: 25 MG, 1X/DAY
     Route: 048
     Dates: start: 20060801
  2. IODINE [Concomitant]
  3. EFFORTIL [Concomitant]
     Indication: HYPOTENSION
     Dosage: UNK
  4. CALCIUM [Concomitant]
  5. VITAMIN D [Concomitant]

REACTIONS (3)
  - ANXIETY [None]
  - FATIGUE [None]
  - PANIC ATTACK [None]
